FAERS Safety Report 20245409 (Version 13)
Quarter: 2025Q3

REPORT INFORMATION
  Report Type: Spontaneous
  Country: IN (occurrence: IN)
  Receive Date: 20211229
  Receipt Date: 20250708
  Transmission Date: 20251021
  Serious: Yes (Hospitalization, Other)
  Sender: PFIZER
  Company Number: IN-PFIZER INC-2021171874

PATIENT
  Age: 60 Year
  Sex: Female
  Weight: 76.3 kg

DRUGS (9)
  1. PALBOCICLIB [Suspect]
     Active Substance: PALBOCICLIB
     Indication: Breast cancer metastatic
     Route: 048
     Dates: start: 20210212
  2. PALBOCICLIB [Suspect]
     Active Substance: PALBOCICLIB
     Route: 048
  3. LETROZOLE [Concomitant]
     Active Substance: LETROZOLE
     Dosage: 2.5 MG, 1X/DAY(1-0-0)
  4. LETROZOLE [Concomitant]
     Active Substance: LETROZOLE
     Dosage: 2.5 MG, 3X/DAY (1-1-1 X 30 DAYS)
  5. TRSON D [Concomitant]
     Dosage: UNK, 2X/DAY
  6. ZOLEDRONIC ACID [Concomitant]
     Active Substance: ZOLEDRONIC ACID
     Route: 042
  7. CCM [Concomitant]
     Dosage: UNK, 1X/DAY (0-1-0)
  8. FASLODEX [Concomitant]
     Active Substance: FULVESTRANT
  9. DENOSUMAB [Concomitant]
     Active Substance: DENOSUMAB

REACTIONS (14)
  - Diabetes mellitus inadequate control [Unknown]
  - Urinary tract infection [Unknown]
  - Breast cancer metastatic [Unknown]
  - Malignant neoplasm progression [Unknown]
  - Blood pressure increased [Unknown]
  - Infection [Unknown]
  - Carbuncle [Unknown]
  - Cough [Not Recovered/Not Resolved]
  - Pain in extremity [Unknown]
  - Respiratory rate increased [Recovered/Resolved]
  - Heart rate increased [Recovered/Resolved]
  - Blood creatinine abnormal [Unknown]
  - Product prescribing error [Unknown]
  - General physical health deterioration [Unknown]

NARRATIVE: CASE EVENT DATE: 20220101
